FAERS Safety Report 4621691-6 (Version None)
Quarter: 2005Q1

REPORT INFORMATION
  Report Type: 
  Country: None (occurrence: None)
  Receive Date: 20050329
  Receipt Date: 20050126
  Transmission Date: 20050727
  Serious: Yes (Other)
  Sender: FDA-Public Use
  Company Number: 200510470FR

PATIENT
  Age: 68 Year
  Sex: Female
  Weight: 99 kg

DRUGS (3)
  1. TAXOTERE [Suspect]
     Indication: BREAST CANCER METASTATIC
     Route: 042
     Dates: start: 20041227, end: 20041227
  2. CORTANCYL [Concomitant]
     Route: 048
     Dates: start: 20041226, end: 20050228
  3. ZOPHREN [Concomitant]
     Dates: start: 20041227, end: 20041227

REACTIONS (8)
  - ASTHENIA [None]
  - CELLULITIS [None]
  - MUSCULOSKELETAL STIFFNESS [None]
  - OEDEMA PERIPHERAL [None]
  - ONYCHOLYSIS [None]
  - PURULENT DISCHARGE [None]
  - SKIN NECROSIS [None]
  - SUPERINFECTION [None]
